FAERS Safety Report 7972992-5 (Version None)
Quarter: 2011Q4

REPORT INFORMATION
  Report Type: 
  Country: None (occurrence: None)
  Receive Date: 20111213
  Receipt Date: 20111207
  Transmission Date: 20120403
  Serious: Yes (Hospitalization, Other)
  Sender: FDA-Public Use
  Company Number: BR-PFIZER INC-2011298519

PATIENT
  Age: 76 Year
  Sex: Female

DRUGS (1)
  1. LYRICA [Suspect]
     Indication: HERPES ZOSTER
     Dosage: 75 MG
     Route: 048
     Dates: end: 20111201

REACTIONS (5)
  - DEPRESSION [None]
  - COMA [None]
  - RESPIRATORY DEPRESSION [None]
  - SEDATION [None]
  - BLOOD CREATININE INCREASED [None]
